FAERS Safety Report 4470163-0 (Version None)
Quarter: 2004Q3

REPORT INFORMATION
  Report Type: 
  Country: None (occurrence: None)
  Receive Date: 20040910
  Receipt Date: 20040727
  Transmission Date: 20050211
  Serious: No
  Sender: FDA-Public Use
  Company Number: 2004226815US

PATIENT
  Age: 89 Year
  Sex: Male

DRUGS (2)
  1. BEXTRA [Suspect]
     Indication: ARTHRALGIA
     Dosage: 10 MG, QD
     Dates: start: 20040611, end: 20040616
  2. HYDROCODONE APAP (HYDROCODONE) [Concomitant]

REACTIONS (4)
  - ASTHENIA [None]
  - BLISTER [None]
  - HYPOAESTHESIA [None]
  - PAIN EXACERBATED [None]
